FAERS Safety Report 9865841 (Version 1)
Quarter: 2014Q1

REPORT INFORMATION
  Report Type: Spontaneous
  Country: US (occurrence: US)
  Receive Date: 20140203
  Receipt Date: 20140203
  Transmission Date: 20141002
  Serious: No
  Sender: FDA-Public Use
  Company Number: US-ALLERGAN-1312975US

PATIENT
  Age: 86 Year
  Sex: Female

DRUGS (1)
  1. RESTASIS [Suspect]
     Indication: DRY EYE
     Dosage: 2 GTT, UNK
     Route: 047
     Dates: start: 20130821, end: 20130821

REACTIONS (4)
  - Lip swelling [Recovering/Resolving]
  - Eye pruritus [Unknown]
  - Vision blurred [Unknown]
  - Dry eye [Unknown]
